FAERS Safety Report 18352281 (Version 1)
Quarter: 2020Q4

REPORT INFORMATION
  Report Type: Spontaneous
  Country: US (occurrence: US)
  Receive Date: 20201007
  Receipt Date: 20201007
  Transmission Date: 20210114
  Serious: No
  Sender: FDA-Public Use
  Company Number: US-SA-2020SA273857

PATIENT

DRUGS (1)
  1. LOVENOX [Suspect]
     Active Substance: ENOXAPARIN SODIUM
     Dosage: DRUG STRUCTURE DOSAGE :   30MG  DRUG INTERVAL DOSAGE :   0.3ML  UNDER SKIN FOR 7 DAYS  DRUG TREATMEN
     Route: 065
     Dates: start: 20190508, end: 20190515

REACTIONS (3)
  - Injection site reaction [Unknown]
  - Condition aggravated [Unknown]
  - Erythema [Unknown]

NARRATIVE: CASE EVENT DATE: 20201002
